FAERS Safety Report 8878925 (Version 1)
Quarter: 2012Q4

REPORT INFORMATION
  Report Type: 
  Country: US (occurrence: US)
  Receive Date: 20121026
  Receipt Date: 20121026
  Transmission Date: 20130627
  Serious: Yes (Hospitalization, Other)
  Sender: FDA-Public Use
  Company Number: US-009507513-2009SP043048

PATIENT

DRUGS (2)
  1. NUVARING [Suspect]
     Indication: CONTRACEPTION
     Dates: start: 200811, end: 200812
  2. VITAMINS (UNSPECIFIED) [Concomitant]
     Indication: GENERAL PHYSICAL CONDITION
     Dosage: UNK UNK, QD

REACTIONS (14)
  - Deep vein thrombosis [Unknown]
  - Pulmonary embolism [Recovering/Resolving]
  - Sinusitis [Unknown]
  - Blood cholesterol increased [Not Recovered/Not Resolved]
  - Venous insufficiency [Unknown]
  - Blood triglycerides increased [Not Recovered/Not Resolved]
  - Upper respiratory tract infection [Unknown]
  - Menorrhagia [Unknown]
  - Endometrial ablation [Unknown]
  - Uterine dilation and curettage [Unknown]
  - Deep vein thrombosis [Unknown]
  - Intervertebral disc degeneration [Unknown]
  - Headache [Unknown]
  - Weight decreased [Unknown]
